FAERS Safety Report 5887083-7 (Version None)
Quarter: 2008Q3

REPORT INFORMATION
  Report Type: 
  Country: None (occurrence: None)
  Receive Date: 20080917
  Receipt Date: 20080905
  Transmission Date: 20090109
  Serious: Yes (Other)
  Sender: FDA-Public Use
  Company Number: BR-PFIZER INC-2007099591

PATIENT
  Sex: Female
  Weight: 63 kg

DRUGS (3)
  1. NEURONTIN [Suspect]
     Indication: PARAESTHESIA
     Route: 048
     Dates: start: 20071001, end: 20071118
  2. OMEPRAZOLE [Concomitant]
  3. AMITRIPTYLINE HCL [Concomitant]

REACTIONS (11)
  - ABDOMINAL PAIN UPPER [None]
  - ASTHENIA [None]
  - BLOOD PRESSURE DECREASED [None]
  - BURNING SENSATION [None]
  - CHILLS [None]
  - DIZZINESS [None]
  - MALAISE [None]
  - NERVE INJURY [None]
  - SPINAL OPERATION [None]
  - VISION BLURRED [None]
  - VOMITING [None]
